FAERS Safety Report 7097677-1 (Version None)
Quarter: 2010Q4

REPORT INFORMATION
  Report Type: 
  Country: None (occurrence: None)
  Receive Date: 20101112
  Receipt Date: 20101104
  Transmission Date: 20110411
  Serious: Yes (Other)
  Sender: FDA-Public Use
  Company Number: US-BIOGENIDEC-2010BI023295

PATIENT
  Age: 52 Year
  Sex: Female
  Weight: 96 kg

DRUGS (8)
  1. AVONEX [Suspect]
     Indication: MULTIPLE SCLEROSIS
     Route: 030
     Dates: start: 20090324
  2. IMMUNE GLOBULIN INTRAVENOUS (HUMAN) [Concomitant]
     Indication: IMMUNOSUPPRESSION
     Route: 042
     Dates: start: 20000101
  3. THEOPHYLLINE [Concomitant]
     Indication: BRONCHITIS CHRONIC
  4. XANAX [Concomitant]
     Indication: ANXIETY
     Dates: start: 20020101
  5. PAXIL [Concomitant]
     Indication: ANXIETY
  6. OXYBUTYNIN [Concomitant]
     Indication: URINARY INCONTINENCE
  7. BACTRIM [Concomitant]
     Indication: URINARY INCONTINENCE
     Route: 048
     Dates: start: 19950101
  8. DARVOCET [Concomitant]
     Indication: PAIN

REACTIONS (4)
  - DISORIENTATION [None]
  - GRAND MAL CONVULSION [None]
  - POSTICTAL HEADACHE [None]
  - URINARY TRACT INFECTION [None]
